FAERS Safety Report 9752470 (Version 1)
Quarter: 2013Q4

REPORT INFORMATION
  Report Type: Spontaneous
  Country: US (occurrence: None)
  Receive Date: 20131211
  Receipt Date: 20131211
  Transmission Date: 20140711
  Serious: Yes (Other)
  Sender: FDA-Public Use
  Company Number: AUR-APL-2013-10199

PATIENT
  Age: 30 Year
  Sex: 0

DRUGS (2)
  1. SIMVASTATIN (SIMVASTATIN) [Suspect]
     Indication: BLOOD CHOLESTEROL
     Dosage: 40 MG, ORAL
     Route: 048
     Dates: start: 201101, end: 201310
  2. METFORMIN (METFORMIN) [Concomitant]

REACTIONS (6)
  - Tremor [None]
  - Muscle spasms [None]
  - Tinnitus [None]
  - Fatigue [None]
  - Balance disorder [None]
  - Insomnia [None]
